FAERS Safety Report 6711743-9 (Version None)
Quarter: 2010Q2

REPORT INFORMATION
  Report Type: 
  Country: None (occurrence: None)
  Receive Date: 20100505
  Receipt Date: 20100430
  Transmission Date: 20101027
  Serious: Yes (Other)
  Sender: FDA-Public Use
  Company Number: A0844583A

PATIENT
  Age: 57 Year
  Sex: Male
  Weight: 74.5 kg

DRUGS (1)
  1. COREG CR [Suspect]
     Indication: DRUG USE FOR UNKNOWN INDICATION
     Dosage: 20MG PER DAY
     Route: 048

REACTIONS (3)
  - DIZZINESS POSTURAL [None]
  - HOMICIDAL IDEATION [None]
  - SUICIDAL IDEATION [None]
